FAERS Safety Report 6609443-9 (Version None)
Quarter: 2010Q1

REPORT INFORMATION
  Report Type: 
  Country: None (occurrence: None)
  Receive Date: 20100223
  Receipt Date: 20100215
  Transmission Date: 20100710
  Serious: Yes (Other)
  Sender: FDA-Public Use
  Company Number: DSA_42631_2010

PATIENT
  Sex: Female

DRUGS (2)
  1. BUPROPION HCL [Suspect]
     Indication: DEPRESSION
     Dosage: 150 MG QD ORAL
     Route: 048
     Dates: start: 20091103, end: 20091104
  2. REMICADE [Suspect]
     Indication: RHEUMATOID ARTHRITIS
     Dosage: DF INTRAVENOUS (NOT OTHERWISE SPECIFIED)
     Route: 042
     Dates: start: 20091102

REACTIONS (4)
  - ASTHENIA [None]
  - PRURITUS [None]
  - RESPIRATORY DISTRESS [None]
  - TREMOR [None]
